FAERS Safety Report 4418106-X (Version None)
Quarter: 2004Q3

REPORT INFORMATION
  Report Type: 
  Country: None (occurrence: None)
  Receive Date: 20040805
  Receipt Date: 20040805
  Transmission Date: 20050211
  Serious: Yes (Disabling)
  Sender: FDA-Public Use
  Company Number: None

PATIENT
  Age: 18 Year
  Sex: Female
  Weight: 48.5349 kg

DRUGS (1)
  1. PROMETHAZINE [Suspect]
     Indication: NAUSEA
     Dosage: 12.5 MG ONE TIME IV PUSH OVER 2 MIN
     Route: 042
     Dates: start: 20040727

REACTIONS (3)
  - INFUSION SITE BRUISING [None]
  - INFUSION SITE PAIN [None]
  - INJECTED LIMB MOBILITY DECREASED [None]
